FAERS Safety Report 5161898-5 (Version None)
Quarter: 2006Q4

REPORT INFORMATION
  Report Type: 
  Country: None (occurrence: None)
  Receive Date: 20061130
  Receipt Date: 20061019
  Transmission Date: 20070319
  Serious: No
  Sender: FDA-Public Use
  Company Number: US-GLAXOSMITHKLINE-A0624243A

PATIENT
  Age: 61 Year
  Sex: Female

DRUGS (12)
  1. WELLBUTRIN XL [Suspect]
     Dosage: 150MG PER DAY
     Route: 048
  2. IBUPROFEN [Concomitant]
  3. ROZEREM [Concomitant]
  4. UNKNOWN MEDICATION [Concomitant]
  5. ELMIRON [Concomitant]
  6. PROTONIX [Concomitant]
  7. TAMOXIFEN CITRATE [Concomitant]
  8. PLAQUENIL [Concomitant]
  9. NEURONTIN [Concomitant]
  10. PROZAC [Concomitant]
  11. PERCOCET [Concomitant]
  12. QUININE SULFATE [Concomitant]

REACTIONS (1)
  - MEDICATION RESIDUE [None]
